FAERS Safety Report 25182485 (Version 2)
Quarter: 2025Q2

REPORT INFORMATION
  Report Type: Report from Study
  Country: BR (occurrence: BR)
  Receive Date: 20250410
  Receipt Date: 20250506
  Transmission Date: 20250717
  Serious: Yes (Hospitalization)
  Sender: TAKEDA
  Company Number: BR-TAKEDA-2025TUS013671

PATIENT
  Sex: Male

DRUGS (1)
  1. PONATINIB [Suspect]
     Active Substance: PONATINIB
     Indication: Product used for unknown indication

REACTIONS (9)
  - Product dose omission issue [Unknown]
  - Urinary tract infection [Unknown]
  - Dark circles under eyes [Not Recovered/Not Resolved]
  - White blood cell disorder [Not Recovered/Not Resolved]
  - Mouth haemorrhage [Unknown]
  - Dizziness [Not Recovered/Not Resolved]
  - Dry eye [Unknown]
  - Contusion [Unknown]
  - Abdominal pain [Unknown]
